FAERS Safety Report 12793780 (Version 1)
Quarter: 2016Q3

REPORT INFORMATION
  Report Type: Spontaneous
  Country: US (occurrence: US)
  Receive Date: 20160929
  Receipt Date: 20160929
  Transmission Date: 20161109
  Serious: No
  Sender: FDA-Public Use
  Company Number: US-JAZZ-2016-US-011677

PATIENT
  Sex: Female

DRUGS (16)
  1. PROTEINS [Concomitant]
  2. XYREM [Suspect]
     Active Substance: SODIUM OXYBATE
     Dosage: 4.5 G, BID
     Route: 048
     Dates: start: 201606
  3. XYREM [Suspect]
     Active Substance: SODIUM OXYBATE
     Indication: FIBROMYALGIA
     Dosage: 4.5 G, BID
     Route: 048
     Dates: start: 200706, end: 2013
  4. PROBIOTIC [Concomitant]
     Active Substance: PROBIOTICS NOS
  5. NORCO [Concomitant]
     Active Substance: ACETAMINOPHEN\HYDROCODONE BITARTRATE
  6. HECTOROL [Concomitant]
     Active Substance: DOXERCALCIFEROL
  7. CALCIUM CITRATE [Concomitant]
     Active Substance: CALCIUM CITRATE
  8. CLONAZEPAM. [Concomitant]
     Active Substance: CLONAZEPAM
  9. FISH OIL OMEGA 3 [Concomitant]
  10. MAGNESIUM CITRATE. [Concomitant]
     Active Substance: MAGNESIUM CITRATE
  11. TYLENOL WITH CODEINE [Concomitant]
     Active Substance: ACETAMINOPHEN\CODEINE PHOSPHATE
  12. ALPRAZOLAM. [Concomitant]
     Active Substance: ALPRAZOLAM
  13. ZOLPIDEM TARTRATE. [Concomitant]
     Active Substance: ZOLPIDEM TARTRATE
  14. T3 [Concomitant]
     Active Substance: LIOTHYRONINE SODIUM
  15. XYREM [Suspect]
     Active Substance: SODIUM OXYBATE
     Dosage: 4.5 G, BID
     Route: 048
     Dates: start: 201501, end: 2015
  16. CHOLINE CHLORIDE [Concomitant]
     Active Substance: CHOLINE CHLORIDE

REACTIONS (2)
  - Ill-defined disorder [Not Recovered/Not Resolved]
  - Dizziness [Unknown]
